FAERS Safety Report 5306664-2 (Version None)
Quarter: 2007Q1

REPORT INFORMATION
  Report Type: 
  Country: None (occurrence: None)
  Receive Date: 20070201
  Receipt Date: 20061114
  Transmission Date: 20070707
  Serious: No
  Sender: FDA-Public Use
  Company Number: 2006PV025262

PATIENT
  Age: 42 Year
  Sex: Female
  Weight: 108.8633 kg

DRUGS (2)
  1. BYETTA [Suspect]
     Indication: DIABETES MELLITUS NON-INSULIN-DEPENDENT
     Dosage: 5 MCG;BID;SC
     Route: 058
     Dates: start: 20061111
  2. AVANDIA [Concomitant]

REACTIONS (6)
  - BLOOD GLUCOSE DECREASED [None]
  - IRRITABILITY [None]
  - NAUSEA [None]
  - SOMNOLENCE [None]
  - URINARY INCONTINENCE [None]
  - VOMITING [None]
